FAERS Safety Report 5774185-9 (Version None)
Quarter: 2008Q2

REPORT INFORMATION
  Report Type: 
  Country: None (occurrence: None)
  Receive Date: 20080601
  Receipt Date: 20080122
  Transmission Date: 20081010
  Serious: No
  Sender: FDA-Public Use
  Company Number: US200710004531

PATIENT
  Age: 58 Year
  Sex: Female
  Weight: 131.1 kg

DRUGS (19)
  1. BYETTA [Suspect]
     Dosage: 5 UG, 2/D, SUBCUTANEOUS : 10 UG, 2/D, SUBCUTANEOUS
     Route: 058
     Dates: start: 20060601
  2. AMARYL [Concomitant]
  3. ENALAPRIL MALEATE [Concomitant]
  4. LEVOTHYROXINE SODIUM [Concomitant]
  5. CELEXA [Concomitant]
  6. LEXAPRO [Concomitant]
  7. FUROSEMIDE [Concomitant]
  8. NYSTATIN [Concomitant]
  9. OXYCODONE HCL [Concomitant]
  10. ADVAIR DISKUS 100/50 [Concomitant]
  11. ALBUTEROL [Concomitant]
  12. PRAVASTATIN [Concomitant]
  13. ALPRAZOLAM [Concomitant]
  14. SPIRIVA [Concomitant]
  15. FLUTICASONE PROPIONATE [Concomitant]
  16. OXYGEN (OXYGEN) [Concomitant]
  17. MULTIVITAMIN [Concomitant]
  18. ACIPHEX [Concomitant]
  19. ASPIRIN [Concomitant]

REACTIONS (3)
  - HYPOGLYCAEMIA [None]
  - INCORRECT DOSE ADMINISTERED [None]
  - PRESYNCOPE [None]
